FAERS Safety Report 21728407 (Version 1)
Quarter: 2022Q4

REPORT INFORMATION
  Report Type: Spontaneous
  Country: US (occurrence: None)
  Receive Date: 20221214
  Receipt Date: 20221214
  Transmission Date: 20230113
  Serious: No
  Sender: FDA-Public Use
  Company Number: 2022A383972

PATIENT
  Sex: Female
  Weight: 43.5 kg

DRUGS (2)
  1. CALQUENCE [Suspect]
     Active Substance: ACALABRUTINIB
     Indication: Chronic lymphocytic leukaemia
     Route: 048
     Dates: start: 20220819
  2. CALQUENCE [Suspect]
     Active Substance: ACALABRUTINIB
     Indication: Chronic lymphocytic leukaemia
     Route: 048

REACTIONS (19)
  - Muscular weakness [Unknown]
  - Pain [Unknown]
  - Gait disturbance [Unknown]
  - Contusion [Unknown]
  - Epistaxis [Unknown]
  - Oral mucosal blistering [Unknown]
  - Dizziness [Recovered/Resolved]
  - Fatigue [Unknown]
  - Mass excision [Unknown]
  - Epistaxis [Recovered/Resolved]
  - White blood cell count [Recovering/Resolving]
  - Pain in extremity [Unknown]
  - Body height abnormal [Unknown]
  - Eating disorder [Unknown]
  - Spleen disorder [Unknown]
  - Drug ineffective [Unknown]
  - Inappropriate schedule of product administration [Unknown]
  - Emergency care [Unknown]
  - Product use issue [Unknown]
